FAERS Safety Report 5762561-X (Version None)
Quarter: 2008Q2

REPORT INFORMATION
  Report Type: 
  Country: None (occurrence: None)
  Receive Date: 20080609
  Receipt Date: 20080602
  Transmission Date: 20081010
  Serious: Yes (Other)
  Sender: FDA-Public Use
  Company Number: B0522882A

PATIENT
  Sex: Female

DRUGS (2)
  1. COMBIVIR [Suspect]
     Indication: ANTIVIRAL PROPHYLAXIS
     Dosage: 2TAB PER DAY
     Route: 048
     Dates: start: 20080501
  2. KALETRA [Suspect]
     Indication: ANTIVIRAL PROPHYLAXIS
     Dosage: 4CAP PER DAY
     Route: 048
     Dates: start: 20080501

REACTIONS (1)
  - DERMATITIS ALLERGIC [None]
